FAERS Safety Report 5939204-5 (Version None)
Quarter: 2008Q4

REPORT INFORMATION
  Report Type: 
  Country: None (occurrence: None)
  Receive Date: 20081103
  Receipt Date: 20081024
  Transmission Date: 20090506
  Serious: Yes (Hospitalization)
  Sender: FDA-Public Use
  Company Number: US-PFIZER INC-2008062545

PATIENT
  Sex: Female
  Weight: 80.3 kg

DRUGS (8)
  1. SU-011,248 [Suspect]
     Indication: BREAST CANCER METASTATIC
     Route: 048
     Dates: start: 20080613
  2. TAXOL [Suspect]
     Indication: BREAST CANCER METASTATIC
     Route: 042
     Dates: start: 20080613
  3. EFFEXOR [Concomitant]
     Route: 048
     Dates: start: 20020101
  4. PRILOSEC [Concomitant]
     Route: 048
     Dates: start: 20050101
  5. ALAVERT [Concomitant]
     Route: 048
     Dates: start: 20080411
  6. TYLENOL [Concomitant]
     Route: 048
     Dates: start: 20080201
  7. SENOKOT [Concomitant]
     Dosage: TEXT:1 TAB-FREQ:BID PRN
     Route: 048
     Dates: start: 20080616
  8. LEVAQUIN [Concomitant]
     Route: 048
     Dates: start: 20080726

REACTIONS (3)
  - HYPOVOLAEMIA [None]
  - PANCYTOPENIA [None]
  - SEPSIS [None]
